FAERS Safety Report 9707690 (Version 1)
Quarter: 2013Q4

REPORT INFORMATION
  Report Type: Spontaneous
  Country: US (occurrence: None)
  Receive Date: 20131122
  Receipt Date: 20131122
  Transmission Date: 20140711
  Serious: Yes (Disabling, Other)
  Sender: FDA-Public Use
  Company Number: None

PATIENT
  Age: 65 Year
  Sex: Female
  Weight: 86.18 kg

DRUGS (2)
  1. CIPRO [Suspect]
     Indication: EAR INFECTION
     Dosage: 1  TWICE DAILY TAKEN BY MOUTH
     Route: 048
     Dates: start: 20131026, end: 20131101
  2. STATIN DRUGS [Suspect]
     Indication: BLOOD CHOLESTEROL INCREASED

REACTIONS (7)
  - Ligament disorder [None]
  - Tendon disorder [None]
  - Pain in extremity [None]
  - Arthralgia [None]
  - Musculoskeletal pain [None]
  - Arthralgia [None]
  - Pain in extremity [None]
